FAERS Safety Report 6310805-8 (Version None)
Quarter: 2009Q3

REPORT INFORMATION
  Report Type: 
  Country: None (occurrence: None)
  Receive Date: 20090812
  Receipt Date: 20090804
  Transmission Date: 20100115
  Serious: Yes (Death, Hospitalization)
  Sender: FDA-Public Use
  Company Number: 2009US002369

PATIENT
  Age: 68 Year
  Sex: Female

DRUGS (16)
  1. PROGRAF [Suspect]
     Indication: HEART TRANSPLANT
     Dosage: 0.5 MG, TID
  2. AMITRIPTYLINE HYDROCHLORIDE [Concomitant]
  3. ASPIRIN [Concomitant]
  4. CELLCEPT [Concomitant]
  5. CLONIDINE [Concomitant]
  6. FLAXSEED OIL (LINUM USITATISSIMUM SEED OIL) [Concomitant]
  7. GENTAMYCIN (GENTAMICIN) CREAM [Concomitant]
  8. TOPROL-XL [Concomitant]
  9. MULTIVITAMIN [Concomitant]
  10. PHOSLO (CALCIUM ACETATE) TABLET [Concomitant]
  11. PROCRIT [Concomitant]
  12. TEMAZEPAM [Concomitant]
  13. TIAZAC [Concomitant]
  14. KEFZOL [Concomitant]
  15. FORTAZ [Concomitant]
  16. VALTREX [Concomitant]

REACTIONS (2)
  - ENCEPHALOPATHY [None]
  - RENAL FAILURE CHRONIC [None]
